FAERS Safety Report 5305601-4 (Version None)
Quarter: 2007Q2

REPORT INFORMATION
  Report Type: 
  Country: None (occurrence: None)
  Receive Date: 20070419
  Receipt Date: 20070419
  Transmission Date: 20071010
  Serious: Yes (Other)
  Sender: FDA-Public Use
  Company Number: None

PATIENT
  Age: 54 Year
  Sex: Female
  Weight: 86.1834 kg

DRUGS (1)
  1. CYMBALTA [Suspect]
     Indication: DEPRESSION
     Dosage: 30 MG  2 IN AM, 1 IN PM  PO
     Route: 048
     Dates: start: 20051101, end: 20070418

REACTIONS (3)
  - HEADACHE [None]
  - NIGHTMARE [None]
  - RAYNAUD'S PHENOMENON [None]
